FAERS Safety Report 8212069-7 (Version None)
Quarter: 2012Q1

REPORT INFORMATION
  Report Type: 
  Country: None (occurrence: None)
  Receive Date: 20120315
  Receipt Date: 20120307
  Transmission Date: 20120608
  Serious: Yes (Hospitalization)
  Sender: FDA-Public Use
  Company Number: PHHO2012SE003244

PATIENT
  Sex: Female
  Weight: 97.7 kg

DRUGS (15)
  1. AMLODIPINE [Suspect]
     Indication: CARDIOVASCULAR DISORDER
     Dosage: ACTIVE RUN IN PHASE
  2. LITHIUM CITRATE [Concomitant]
  3. HYDROCHLOROTHIAZIDE [Concomitant]
     Dosage: 25 MG, UNK
     Dates: start: 20111219, end: 20120109
  4. METOPROLOL SUCCINATE [Concomitant]
  5. ATARAX [Concomitant]
  6. FENURIL [Concomitant]
  7. LEVOTHYROXINE SODIUM [Concomitant]
  8. BLINDED ALISKIREN [Suspect]
     Indication: CARDIOVASCULAR DISORDER
     Dosage: ACTIVE RUN IN PHASE
  9. BLINDED NO TREATMENT RECEIVED [Suspect]
     Indication: CARDIOVASCULAR DISORDER
     Dosage: ACTIVE RUN IN PHASE
  10. BIGUANIDES [Concomitant]
     Dosage: UNK
  11. ESIDRIX [Suspect]
     Indication: CARDIOVASCULAR DISORDER
     Dosage: ACTIVE RUN IN PHASE
  12. ALISKIREN [Suspect]
     Dosage: 300 MG, UNK
     Dates: start: 20111219, end: 20120109
  13. GLIPIZIDE [Concomitant]
  14. BLINDED PLACEBO [Suspect]
     Indication: CARDIOVASCULAR DISORDER
     Dosage: ACTIVE RUN IN PHASE
  15. ENALAPRIL [Suspect]
     Dosage: 20 MG, UNK
     Dates: start: 20090225

REACTIONS (1)
  - DRUG INTERACTION [None]
